FAERS Safety Report 19649750 (Version 1)
Quarter: 2021Q3

REPORT INFORMATION
  Report Type: Report from Study
  Country: None (occurrence: US)
  Receive Date: 20210803
  Receipt Date: 20210803
  Transmission Date: 20211014
  Serious: Yes (Hospitalization, Other)
  Sender: FDA-Public Use
  Company Number: US-ABBVIE-20K-163-3572199-00

PATIENT
  Age: 70 Year
  Sex: Female
  Weight: 74.91 kg

DRUGS (12)
  1. PREDNISONE. [Concomitant]
     Active Substance: PREDNISONE
     Indication: PRODUCT USED FOR UNKNOWN INDICATION
  2. LIPITOR [Concomitant]
     Active Substance: ATORVASTATIN CALCIUM
     Indication: PRODUCT USED FOR UNKNOWN INDICATION
  3. TESSALON [Concomitant]
     Active Substance: BENZONATATE
     Indication: PRODUCT USED FOR UNKNOWN INDICATION
  4. FOLATE [Concomitant]
     Active Substance: FOLATE SODIUM
     Indication: PRODUCT USED FOR UNKNOWN INDICATION
  5. ZITHROMAX [Concomitant]
     Active Substance: AZITHROMYCIN DIHYDRATE
     Indication: PRODUCT USED FOR UNKNOWN INDICATION
     Dosage: DAY 1
  6. LOPRESSOR HCT [Concomitant]
     Active Substance: HYDROCHLOROTHIAZIDE\METOPROLOL TARTRATE
     Indication: PRODUCT USED FOR UNKNOWN INDICATION
     Route: 048
  7. MUCINEX [Concomitant]
     Active Substance: GUAIFENESIN
     Indication: PRODUCT USED FOR UNKNOWN INDICATION
     Route: 048
     Dates: start: 20200914, end: 20200919
  8. HUMIRA [Suspect]
     Active Substance: ADALIMUMAB
     Indication: RHEUMATOID ARTHRITIS
     Route: 058
     Dates: start: 20160531
  9. ZITHROMAX [Concomitant]
     Active Substance: AZITHROMYCIN DIHYDRATE
     Dosage: DAY 1
  10. DESYREL [Concomitant]
     Active Substance: TRAZODONE HYDROCHLORIDE
     Indication: PRODUCT USED FOR UNKNOWN INDICATION
  11. COD LIVER OIL [Concomitant]
     Active Substance: COD LIVER OIL
     Indication: PRODUCT USED FOR UNKNOWN INDICATION
  12. HYDROCORTISONE. [Concomitant]
     Active Substance: HYDROCORTISONE
     Indication: PRODUCT USED FOR UNKNOWN INDICATION

REACTIONS (23)
  - Type IIa hyperlipidaemia [Not Recovered/Not Resolved]
  - Nausea [Unknown]
  - Suspected COVID-19 [Recovered/Resolved]
  - Chronic obstructive pulmonary disease [Recovered/Resolved]
  - Sciatica [Recovered/Resolved]
  - Dehydration [Unknown]
  - Iron deficiency anaemia [Unknown]
  - Asthma [Unknown]
  - Rhinitis allergic [Recovered/Resolved]
  - Gastrooesophageal reflux disease [Not Recovered/Not Resolved]
  - Chronic kidney disease [Not Recovered/Not Resolved]
  - Normal tension glaucoma [Not Recovered/Not Resolved]
  - Vomiting [Unknown]
  - Body mass index increased [Not Recovered/Not Resolved]
  - Myalgia [Not Recovered/Not Resolved]
  - Fibrin D dimer increased [Unknown]
  - Bronchitis viral [Recovering/Resolving]
  - Deafness unilateral [Not Recovered/Not Resolved]
  - Oesophagitis [Not Recovered/Not Resolved]
  - Chronic kidney disease [Not Recovered/Not Resolved]
  - Diarrhoea [Unknown]
  - Pneumonia [Recovering/Resolving]
  - Overweight [Not Recovered/Not Resolved]

NARRATIVE: CASE EVENT DATE: 20170912
